FAERS Safety Report 8611129-6 (Version None)
Quarter: 2012Q3

REPORT INFORMATION
  Report Type: 
  Country: None (occurrence: None)
  Receive Date: 20120423
  Receipt Date: 20100308
  Transmission Date: 20120928
  Serious: Yes (Hospitalization)
  Sender: FDA-Public Use
  Company Number: PHEH2010US02941

PATIENT
  Age: 66 Year
  Sex: Female
  Weight: 104.3 kg

DRUGS (1)
  1. EXJADE [Suspect]
     Dosage: 3000 MG, QD, ORAL
     Route: 048
     Dates: start: 20090717

REACTIONS (1)
  - INFECTION [None]
